FAERS Safety Report 9872007 (Version 1)
Quarter: 2014Q1

REPORT INFORMATION
  Report Type: Spontaneous
  Country: US (occurrence: US)
  Receive Date: 20140205
  Receipt Date: 20140205
  Transmission Date: 20141002
  Serious: Yes (Hospitalization)
  Sender: FDA-Public Use
  Company Number: US-B.I. PHARMACEUTICALS,INC./RIDGEFIELD-2014-BI-03980BP

PATIENT
  Age: 46 Year
  Sex: Female
  Weight: 47 kg

DRUGS (4)
  1. SPIRIVA [Suspect]
     Indication: EMPHYSEMA
     Dosage: 18 MCG
     Route: 055
     Dates: start: 2012
  2. ALBUTEROL [Concomitant]
     Indication: CHRONIC OBSTRUCTIVE PULMONARY DISEASE
     Dosage: 4 PUF
     Route: 055
     Dates: start: 2011
  3. PULMICORT [Concomitant]
     Indication: CHRONIC OBSTRUCTIVE PULMONARY DISEASE
     Route: 055
     Dates: start: 2013
  4. ADVAIR [Concomitant]
     Indication: CHRONIC OBSTRUCTIVE PULMONARY DISEASE
     Route: 055
     Dates: start: 2012

REACTIONS (7)
  - Stress cardiomyopathy [Recovered/Resolved]
  - Musculoskeletal pain [Recovered/Resolved]
  - Myocardial infarction [Recovered/Resolved]
  - Coronary artery occlusion [Not Recovered/Not Resolved]
  - Dyspnoea [Not Recovered/Not Resolved]
  - Hypertension [Recovered/Resolved]
  - Blood cholesterol increased [Not Recovered/Not Resolved]
